FAERS Safety Report 9870395 (Version 1)
Quarter: 2013Q2

REPORT INFORMATION
  Report Type: Spontaneous
  Country: US (occurrence: None)
  Receive Date: 20121031
  Receipt Date: 20121031
  Transmission Date: 20140414
  Serious: No
  Sender: FDA-Public Use
  Company Number: PHHY2011US57158

PATIENT
  Age: 44 Year
  Sex: Male
  Weight: 83.4 kg

DRUGS (1)
  1. GILENYA (FTY) CAPSULE, 0.5 MG [Suspect]
     Indication: MULTIPLE SCLEROSIS
     Dates: start: 20110609

REACTIONS (2)
  - Hypertension [None]
  - Inappropriate schedule of drug administration [None]
